FAERS Safety Report 21956717 (Version 1)
Quarter: 2023Q1

REPORT INFORMATION
  Report Type: Spontaneous
  Country: US (occurrence: US)
  Receive Date: 20230206
  Receipt Date: 20230206
  Transmission Date: 20230418
  Serious: No
  Sender: FDA-Public Use
  Company Number: US-PERRIGO-22US013885

PATIENT
  Age: 67 Year
  Sex: Female
  Weight: 68.934 kg

DRUGS (6)
  1. CETIRIZINE HYDROCHLORIDE [Suspect]
     Active Substance: CETIRIZINE HYDROCHLORIDE
     Indication: Rhinorrhoea
     Dosage: 10 MG, QD
     Route: 048
     Dates: start: 202209, end: 202209
  2. CETIRIZINE HYDROCHLORIDE [Suspect]
     Active Substance: CETIRIZINE HYDROCHLORIDE
     Dosage: 10 MG, QD
     Route: 048
     Dates: start: 20221018, end: 20221019
  3. FLONASE ALLERGY RELIEF [Concomitant]
     Active Substance: FLUTICASONE PROPIONATE
     Indication: Rhinorrhoea
     Dosage: UNKNOWN, PRN
     Route: 065
  4. TELMISARTAN [Concomitant]
     Active Substance: TELMISARTAN
     Indication: Hypertension
     Dosage: UNKNOWN, UNKNOWN
     Route: 065
     Dates: start: 2021
  5. LASIX [Concomitant]
     Active Substance: FUROSEMIDE
     Indication: Swelling
     Dosage: UNKNOWN, UNKNOWN
     Route: 065
  6. AMLODIPINE [Concomitant]
     Active Substance: AMLODIPINE BESYLATE
     Indication: Hypertension
     Dosage: UNK
     Route: 065
     Dates: start: 2022, end: 20221012

REACTIONS (2)
  - Drug ineffective for unapproved indication [Unknown]
  - Product administered to patient of inappropriate age [Unknown]

NARRATIVE: CASE EVENT DATE: 20220901
